FAERS Safety Report 9345913 (Version 1)
Quarter: 2013Q2

REPORT INFORMATION
  Report Type: Spontaneous
  Country: BR (occurrence: BR)
  Receive Date: 20130613
  Receipt Date: 20130613
  Transmission Date: 20140414
  Serious: Yes (Hospitalization)
  Sender: FDA-Public Use
  Company Number: BR-ASTRAZENECA-2013SE41028

PATIENT
  Age: 1022 Month
  Sex: Male
  Weight: 58 kg

DRUGS (11)
  1. ATENOLOL [Suspect]
     Indication: HYPERTENSION
     Route: 065
     Dates: start: 2011, end: 201305
  2. ATACAND [Suspect]
     Indication: HYPERTENSION
     Route: 048
     Dates: start: 2011, end: 201303
  3. SELOZOK [Suspect]
     Indication: HYPERTENSION
     Route: 048
     Dates: start: 201305
  4. ADALAT [Suspect]
     Dosage: DAILY
     Route: 065
     Dates: start: 201305
  5. DIOVAN [Suspect]
     Route: 065
     Dates: start: 201303, end: 201305
  6. ATENSINA [Suspect]
     Route: 065
     Dates: start: 201303, end: 201305
  7. MODURETIC [Concomitant]
     Indication: HYPERTENSION
     Dates: start: 2011, end: 201303
  8. APRESOLINA [Concomitant]
     Indication: HYPERTENSION
     Dosage: THREE TIMES A DAY
     Dates: start: 2011, end: 201303
  9. COVERSYL PLUS [Concomitant]
     Dosage: DAILY
     Dates: start: 201305
  10. CEBRALAT [Concomitant]
     Dosage: TWO TIMES A DAY
     Dates: start: 2009
  11. CLINFAR [Concomitant]
     Dates: start: 2009

REACTIONS (6)
  - Blood pressure increased [Recovered/Resolved]
  - Blood pressure fluctuation [Recovered/Resolved]
  - Somnolence [Unknown]
  - Oedema peripheral [Not Recovered/Not Resolved]
  - Drug ineffective [Unknown]
  - Off label use [Not Recovered/Not Resolved]
